FAERS Safety Report 11771875 (Version 3)
Quarter: 2015Q4

REPORT INFORMATION
  Report Type: Spontaneous
  Country: US (occurrence: US)
  Receive Date: 20151124
  Receipt Date: 20151217
  Transmission Date: 20160304
  Serious: No
  Sender: FDA-Public Use
  Company Number: US-PFIZER INC-2015404558

PATIENT
  Age: 66 Year
  Sex: Female
  Weight: 68 kg

DRUGS (1)
  1. GLYSET [Suspect]
     Active Substance: MIGLITOL
     Indication: GLUCOSE TOLERANCE IMPAIRED
     Dosage: 25 MG, 3X/DAY

REACTIONS (2)
  - Rash macular [Unknown]
  - Skin discolouration [Unknown]
